FAERS Safety Report 24979928 (Version 3)
Quarter: 2025Q3

REPORT INFORMATION
  Report Type: Other
  Country: US (occurrence: US)
  Receive Date: 20250218
  Receipt Date: 20250920
  Transmission Date: 20251021
  Serious: No
  Sender: TRAVERE THERAPEUTICS
  Company Number: US-TRAVERE-2025TVT00209

PATIENT
  Sex: Female

DRUGS (1)
  1. FILSPARI [Suspect]
     Active Substance: SPARSENTAN
     Indication: IgA nephropathy
     Route: 048
     Dates: start: 20250226

REACTIONS (4)
  - Sensitive skin [Unknown]
  - Blood cholesterol increased [Unknown]
  - Glomerular filtration rate decreased [Unknown]
  - Red blood cell count increased [Unknown]
